FAERS Safety Report 17526478 (Version 7)
Quarter: 2020Q2

REPORT INFORMATION
  Report Type: Spontaneous
  Country: US (occurrence: US)
  Receive Date: 20200311
  Receipt Date: 20200612
  Transmission Date: 20200713
  Serious: Yes (Disabling, Other)
  Sender: FDA-Public Use
  Company Number: US-PFIZER INC-2020101752

PATIENT
  Age: 77 Year
  Sex: Male
  Weight: 80.74 kg

DRUGS (11)
  1. TIKOSYN [Suspect]
     Active Substance: DOFETILIDE
     Indication: PROPHYLAXIS
     Dosage: UNK, DAILY
     Route: 048
     Dates: start: 20190410, end: 20191016
  2. VANCOMYCIN HCL [Suspect]
     Active Substance: VANCOMYCIN HYDROCHLORIDE
     Dosage: UNK
  3. DAPTOMYCIN. [Suspect]
     Active Substance: DAPTOMYCIN
     Indication: PHLEBITIS
  4. DAPTOMYCIN. [Suspect]
     Active Substance: DAPTOMYCIN
     Indication: INFECTION
  5. SOTALOL. [Concomitant]
     Active Substance: SOTALOL
     Dosage: UNK
  6. TIKOSYN [Suspect]
     Active Substance: DOFETILIDE
     Indication: ATRIAL FIBRILLATION
     Dosage: UNK
     Dates: start: 201903
  7. AMLODIPINE [Concomitant]
     Active Substance: AMLODIPINE BESYLATE
     Dosage: 10 MG, DAILY
     Dates: start: 2013
  8. DAPTOMYCIN. [Suspect]
     Active Substance: DAPTOMYCIN
     Indication: NOSOCOMIAL INFECTION
     Dosage: UNK, 1X/DAY
     Route: 042
     Dates: start: 201904
  9. LISINOPRIL. [Concomitant]
     Active Substance: LISINOPRIL
     Dosage: 20 MG, 2X/DAY
     Dates: start: 2013
  10. DAPTOMYCIN. [Suspect]
     Active Substance: DAPTOMYCIN
     Indication: CELLULITIS
     Dosage: UNK, DAILY
     Route: 042
     Dates: start: 20190417, end: 20190427
  11. LIPITOR [Concomitant]
     Active Substance: ATORVASTATIN CALCIUM
     Dosage: UNK
     Dates: start: 2013

REACTIONS (3)
  - Balance disorder [Recovering/Resolving]
  - Fall [Recovering/Resolving]
  - Paraesthesia [Recovering/Resolving]

NARRATIVE: CASE EVENT DATE: 201906
